FAERS Safety Report 8915704 (Version 1)
Quarter: 2012Q4

REPORT INFORMATION
  Report Type: 
  Country: DE (occurrence: DE)
  Receive Date: 20121119
  Receipt Date: 20121119
  Transmission Date: 20130627
  Serious: Yes (Congenital Anomaly, Other)
  Sender: FDA-Public Use
  Company Number: DE-009507513-1009DEU00132B1

PATIENT
  Age: 0 Year
  Sex: Male
  Weight: 1.6 kg

DRUGS (7)
  1. ISENTRESS [Suspect]
     Indication: HIV INFECTION
     Dosage: 400 mg, bid
     Route: 064
     Dates: start: 20081129
  2. TRIZIVIR [Suspect]
     Indication: HIV INFECTION
     Dosage: 300-150-300
     Route: 064
     Dates: start: 20081129
  3. TRIZIVIR [Suspect]
     Route: 064
  4. VIREAD [Suspect]
     Indication: HIV INFECTION
     Dosage: 245 mg, qd
     Route: 064
     Dates: start: 20081129
  5. NORVIR [Suspect]
     Indication: HIV INFECTION
     Dosage: 100 mg, bid
     Route: 064
     Dates: start: 20081129
  6. PREZISTA [Suspect]
     Indication: HIV INFECTION
     Dosage: 600 mg, bid
     Route: 064
     Dates: start: 20081129
  7. ANTIVIRAL (UNSPECIFIED) [Suspect]
     Route: 064

REACTIONS (7)
  - Foetal exposure during pregnancy [Recovered/Resolved]
  - Oesophageal atresia [Unknown]
  - Hemivertebra [Unknown]
  - Spine malformation [Unknown]
  - Premature baby [Unknown]
  - Maternal drugs affecting foetus [Unknown]
  - Small for dates baby [Unknown]
